FAERS Safety Report 4446244-4 (Version None)
Quarter: 2004Q3

REPORT INFORMATION
  Report Type: 
  Country: None (occurrence: None)
  Receive Date: 20040902
  Receipt Date: 20040817
  Transmission Date: 20050211
  Serious: Yes (Death)
  Sender: FDA-Public Use
  Company Number: 200401754

PATIENT
  Sex: Female

DRUGS (3)
  1. SOSEGON (PENTAZOCINE) [Suspect]
  2. DORMICUM (MIDAZOLAM) [Suspect]
  3. SUCCIN (SUXAMETHONIUM CHLORIDE) [Suspect]

REACTIONS (1)
  - ACCIDENT [None]
